FAERS Safety Report 4487607-0 (Version None)
Quarter: 2004Q4

REPORT INFORMATION
  Report Type: 
  Country: None (occurrence: None)
  Receive Date: 20041027
  Receipt Date: 20041027
  Transmission Date: 20050328
  Serious: Yes (Disabling)
  Sender: FDA-Public Use
  Company Number: None

PATIENT
  Sex: Female
  Weight: 154.223 kg

DRUGS (3)
  1. GABITRIL [Suspect]
     Indication: NEURALGIA
     Dosage: 1PILL BID  ORAL
     Route: 048
  2. DURAGESIC [Suspect]
     Indication: BACK PAIN
     Dosage: 1 PATCH  EVERY 72 HRS  TRANSDERMAL
     Route: 062
  3. DURAGESIC [Suspect]
     Indication: PAIN IN EXTREMITY
     Dosage: 1 PATCH  EVERY 72 HRS  TRANSDERMAL
     Route: 062

REACTIONS (14)
  - ACTIVITIES OF DAILY LIVING IMPAIRED [None]
  - ASTHENIA [None]
  - BACK PAIN [None]
  - DIFFICULTY IN WALKING [None]
  - DRUG INEFFECTIVE [None]
  - FALL [None]
  - GAIT DISTURBANCE [None]
  - HYPERAESTHESIA [None]
  - HYPOAESTHESIA [None]
  - IMPAIRED DRIVING ABILITY [None]
  - INSOMNIA [None]
  - NERVE INJURY [None]
  - PAIN IN EXTREMITY [None]
  - PARAESTHESIA [None]
